FAERS Safety Report 16169300 (Version 1)
Quarter: 2019Q2

REPORT INFORMATION
  Report Type: Spontaneous
  Country: CN (occurrence: CN)
  Receive Date: 20190408
  Receipt Date: 20190408
  Transmission Date: 20190711
  Serious: Yes (Other)
  Sender: FDA-Public Use
  Company Number: CN-PFIZER INC-2019147089

PATIENT
  Age: 3 Year
  Sex: Female
  Weight: 13.5 kg

DRUGS (4)
  1. CYCLOPHOSPHAMIDE. [Suspect]
     Active Substance: CYCLOPHOSPHAMIDE
     Indication: ACUTE LYMPHOCYTIC LEUKAEMIA
     Dosage: 0.555 G, 1X/DAY (QD,D1)
     Route: 041
     Dates: start: 20190219, end: 20190219
  2. MERCAPTOPURINE. [Concomitant]
     Active Substance: MERCAPTOPURINE
     Indication: ACUTE LYMPHOCYTIC LEUKAEMIA
     Dosage: 27.75 MG, 1X/DAY
     Route: 048
     Dates: start: 20190219, end: 20190304
  3. PEGASPARGASE [Suspect]
     Active Substance: PEGASPARGASE
     Indication: ACUTE LYMPHOCYTIC LEUKAEMIA
     Dosage: 1387.5 IU, 1X/DAY (D3)
     Route: 030
     Dates: start: 20190221, end: 20190221
  4. CYTARABINE. [Suspect]
     Active Substance: CYTARABINE
     Indication: ACUTE LYMPHOCYTIC LEUKAEMIA
     Dosage: 41.625 MG, CYCLIC (QD,D3-6,11-13)
     Route: 041
     Dates: start: 20190221

REACTIONS (2)
  - Bone marrow failure [Recovering/Resolving]
  - Hypofibrinogenaemia [Recovering/Resolving]

NARRATIVE: CASE EVENT DATE: 20190303
